FAERS Safety Report 7035859-5 (Version None)
Quarter: 2010Q4

REPORT INFORMATION
  Report Type: 
  Country: None (occurrence: None)
  Receive Date: 20101008
  Receipt Date: 20100928
  Transmission Date: 20110411
  Serious: Yes (Death)
  Sender: FDA-Public Use
  Company Number: GXKR2010GB11019

PATIENT
  Age: 68 Year
  Sex: Female

DRUGS (17)
  1. CODEINE SULFATE [Suspect]
     Dosage: 60 MG, QID
     Route: 048
  2. CODEINE SULFATE [Suspect]
     Dosage: 30 MG, 8 TABLET EACH DAY
  3. CODEINE SULFATE [Suspect]
     Dosage: 240 MG, QD
  4. CODEINE SULFATE [Suspect]
     Dosage: 40 ML AT LUNCH TIME AND 20 ML AT NIGHT
  5. METHADONE [Suspect]
  6. NUROFEN PLUS [Suspect]
     Dosage: UNK
     Route: 048
  7. NUROFEN PLUS [Suspect]
     Dosage: 16 TABLET PER DAY
  8. ZOPICLONE [Suspect]
     Indication: SLEEP DISORDER
     Dosage: 15MG AT NIGHT
     Route: 048
  9. ZOPICLONE [Suspect]
     Dosage: 11.25 MG, UNK
     Dates: start: 20100319
  10. FOLIC ACID [Concomitant]
  11. NITROFURANTOIN [Concomitant]
     Dosage: 100 MG, UNK
  12. OMEPRAZOLE [Concomitant]
     Indication: ABDOMINAL DISCOMFORT
  13. SANDO K [Concomitant]
     Indication: RENAL DISORDER
  14. SERTRALINE [Concomitant]
     Indication: DEPRESSION
     Dosage: 150 MG, QD
  15. THIAMINE HCL [Concomitant]
     Indication: PERNICIOUS ANAEMIA
  16. VITAMIN B-12 [Concomitant]
     Indication: PERNICIOUS ANAEMIA
  17. VITAMIN B COMPLEX CAP [Concomitant]
     Indication: PERNICIOUS ANAEMIA

REACTIONS (2)
  - CARDIAC ARREST [None]
  - DEPENDENCE [None]
